FAERS Safety Report 16266837 (Version 2)
Quarter: 2019Q2

REPORT INFORMATION
  Report Type: Spontaneous
  Country: CN (occurrence: CN)
  Receive Date: 20190502
  Receipt Date: 20190508
  Transmission Date: 20190711
  Serious: Yes (Life-Threatening, Hospitalization, Other)
  Sender: FDA-Public Use
  Company Number: CN-BAUSCH-BL-2019-012911

PATIENT
  Age: 77 Year
  Sex: Male

DRUGS (11)
  1. DICLOFENAC [Suspect]
     Active Substance: DICLOFENAC
     Indication: ARTHRALGIA
     Dosage: THE LAST 3 YEARS, INTERMITTENTLY
     Route: 048
  2. CEFDINIR. [Suspect]
     Active Substance: CEFDINIR
     Indication: GASTROINTESTINAL INFECTION
     Route: 048
     Dates: start: 20171029, end: 20171105
  3. OMEPRAZOLE. [Suspect]
     Active Substance: OMEPRAZOLE
     Indication: ABDOMINAL DISCOMFORT
     Route: 048
  4. PANTOPRAZOLE [Suspect]
     Active Substance: PANTOPRAZOLE
     Indication: ABDOMINAL DISCOMFORT
     Route: 041
     Dates: start: 20171024
  5. DICLOFENAC [Suspect]
     Active Substance: DICLOFENAC
     Indication: NECROSIS
  6. PANTOPRAZOLE [Suspect]
     Active Substance: PANTOPRAZOLE
     Route: 042
     Dates: end: 20171105
  7. FUROSEMIDE. [Concomitant]
     Active Substance: FUROSEMIDE
     Indication: CORONARY ARTERY DISEASE
     Route: 048
  8. CEFEPIME [Suspect]
     Active Substance: CEFEPIME HYDROCHLORIDE
     Indication: GASTROINTESTINAL INFECTION
     Route: 042
     Dates: start: 20171024, end: 20171029
  9. DICLOFENAC [Suspect]
     Active Substance: DICLOFENAC
     Indication: ARTHRALGIA
  10. CLOSTRIDIUM BUTYRICUM [Concomitant]
     Active Substance: CLOSTRIDIUM BUTYRICUM SPORES STRAIN M-55
     Indication: DYSBIOSIS
  11. SPIRONOLACTONE. [Concomitant]
     Active Substance: SPIRONOLACTONE
     Indication: CORONARY ARTERY DISEASE
     Route: 048

REACTIONS (4)
  - Gastrointestinal injury [Recovering/Resolving]
  - Large intestinal ulcer [Recovering/Resolving]
  - Clostridium difficile infection [Recovered/Resolved]
  - Clostridium difficile colitis [Recovered/Resolved]

NARRATIVE: CASE EVENT DATE: 20171111
